FAERS Safety Report 9932597 (Version 1)
Quarter: 2014Q1

REPORT INFORMATION
  Report Type: Spontaneous
  Country: US (occurrence: US)
  Receive Date: 20140228
  Receipt Date: 20140228
  Transmission Date: 20141002
  Serious: No
  Sender: FDA-Public Use
  Company Number: US-GLAXOSMITHKLINE-A1022336A

PATIENT
  Age: 54 Year
  Sex: Male

DRUGS (2)
  1. LAMICTAL [Suspect]
     Indication: BIPOLAR DISORDER
     Dosage: 250MG PER DAY
     Route: 048
  2. LITHIUM [Concomitant]

REACTIONS (2)
  - Abulia [Not Recovered/Not Resolved]
  - Depression [Not Recovered/Not Resolved]
